FAERS Safety Report 9000278 (Version 1)
Quarter: 2013Q1

REPORT INFORMATION
  Report Type: Report from Study
  Country: US (occurrence: US)
  Receive Date: 20130107
  Receipt Date: 20130107
  Transmission Date: 20140127
  Serious: Yes (Death, Other)
  Sender: FDA-Public Use
  Company Number: US-CELGENEUS-163-50794-13010054

PATIENT
  Sex: 0

DRUGS (3)
  1. VIDAZA [Suspect]
     Indication: CHRONIC LYMPHOCYTIC LEUKAEMIA
     Dosage: 75 MILLIGRAM/SQ. METER
     Route: 058
  2. VIDAZA [Suspect]
     Dosage: 100 MILLIGRAM/SQ. METER
     Route: 058
  3. VIDAZA [Suspect]
     Dosage: 50-25MG/M2
     Route: 058

REACTIONS (10)
  - Death [Fatal]
  - Thrombocytopenia [Unknown]
  - Anaemia [Unknown]
  - Neutropenia [Unknown]
  - Diarrhoea [Unknown]
  - Rash [Unknown]
  - Infection [Unknown]
  - Pyrexia [Unknown]
  - Pneumonia [Unknown]
  - Vomiting [Unknown]
